FAERS Safety Report 13255700 (Version 1)
Quarter: 2017Q1

REPORT INFORMATION
  Report Type: Spontaneous
  Country: US (occurrence: US)
  Receive Date: 20170221
  Receipt Date: 20170221
  Transmission Date: 20170428
  Serious: Yes (Hospitalization, Other)
  Sender: FDA-Public Use
  Company Number: US-B.I. PHARMACEUTICALS,INC./RIDGEFIELD-2017-BI-008530

PATIENT
  Age: 38 Year
  Sex: Female

DRUGS (1)
  1. ZANTAC [Suspect]
     Active Substance: RANITIDINE HYDROCHLORIDE
     Indication: HYPERSENSITIVITY
     Route: 048
     Dates: start: 201605

REACTIONS (10)
  - Mast cell activation syndrome [Unknown]
  - Flushing [Unknown]
  - Weight decreased [Unknown]
  - Food allergy [Unknown]
  - Abdominal discomfort [Unknown]
  - Anaphylactic reaction [Recovered/Resolved]
  - Peripheral swelling [Unknown]
  - Tachycardia [Unknown]
  - Urticaria [Unknown]
  - Off label use [Unknown]

NARRATIVE: CASE EVENT DATE: 201605
